FAERS Safety Report 8912150 (Version 2)
Quarter: 2013Q1

REPORT INFORMATION
  Report Type: Spontaneous
  Country: US (occurrence: US)
  Receive Date: 20121116
  Receipt Date: 20130123
  Transmission Date: 20140127
  Serious: No
  Sender: FDA-Public Use
  Company Number: US-ELI_LILLY_AND_COMPANY-US201211001818

PATIENT
  Sex: Male

DRUGS (7)
  1. CYMBALTA [Suspect]
     Indication: DEPRESSION
     Dosage: 30 MG, QD
     Dates: start: 201203, end: 201205
  2. CYMBALTA [Suspect]
     Dosage: 60 MG, QD
     Dates: start: 201205, end: 201210
  3. CYMBALTA [Suspect]
     Dosage: 30 MG, OTHER
     Dates: start: 201210
  4. CYMBALTA [Suspect]
     Dosage: 60 MG, OTHER
     Dates: start: 201210
  5. ALLEGRA [Concomitant]
  6. TRAMADOL [Concomitant]
  7. MELOXICAM [Concomitant]

REACTIONS (9)
  - Gastrooesophageal reflux disease [Not Recovered/Not Resolved]
  - Intentional drug misuse [Unknown]
  - Hypersensitivity [Not Recovered/Not Resolved]
  - Mental disorder [Unknown]
  - Dizziness [Unknown]
  - Pruritus [Unknown]
  - Drug withdrawal syndrome [Unknown]
  - Depression [Unknown]
  - Dizziness [Unknown]
